FAERS Safety Report 21672860 (Version 2)
Quarter: 2022Q4

REPORT INFORMATION
  Report Type: Report from Study
  Country: US (occurrence: US)
  Receive Date: 20221202
  Receipt Date: 20221220
  Transmission Date: 20230113
  Serious: No
  Sender: FDA-Public Use
  Company Number: US-002147023-NVSC2022US277707

PATIENT
  Sex: Male

DRUGS (1)
  1. LEQVIO [Suspect]
     Active Substance: INCLISIRAN SODIUM
     Indication: Product used for unknown indication
     Dosage: UNK
     Route: 058
     Dates: start: 20221115

REACTIONS (7)
  - Heart rate increased [Unknown]
  - Weight increased [Unknown]
  - Blood pressure increased [Unknown]
  - Fluid retention [Unknown]
  - Headache [Recovering/Resolving]
  - Fatigue [Unknown]
  - Periorbital swelling [Unknown]
